FAERS Safety Report 6057848-X (Version None)
Quarter: 2009Q1

REPORT INFORMATION
  Report Type: 
  Country: None (occurrence: None)
  Receive Date: 20090129
  Receipt Date: 20090119
  Transmission Date: 20090719
  Serious: Yes (Hospitalization)
  Sender: FDA-Public Use
  Company Number: ZA-ELI_LILLY_AND_COMPANY-ZA200810005194

PATIENT
  Age: 25 Year
  Sex: Female
  Weight: 108 kg

DRUGS (8)
  1. ZYPREXA [Suspect]
     Indication: BIPOLAR DISORDER
     Dosage: 10 MG, 2/D
     Route: 048
     Dates: start: 20080201, end: 20080101
  2. ZYPREXA [Suspect]
     Dosage: 10 MG, DAILY (1/D)
     Route: 048
     Dates: start: 20080101, end: 20080101
  3. PAROXETINE HCL [Concomitant]
     Indication: BIPOLAR I DISORDER
     Dosage: 1.5 D/F, UNK
     Dates: start: 20080101
  4. YASMIN [Concomitant]
     Indication: CONTRACEPTION
     Dosage: 1 D/F, DAILY (1/D)
     Route: 048
     Dates: start: 20080101
  5. RIVOTRIL [Concomitant]
     Indication: CONVULSION PROPHYLAXIS
     Dosage: 2 MG, 2/D
     Dates: start: 20080101
  6. GEODON [Concomitant]
     Indication: BIPOLAR DISORDER
     Dosage: 80 MG, 2/D
     Dates: start: 20080901
  7. OXAPAX [Concomitant]
     Dosage: 30 MG, DAILY (1/D)
  8. ZOLPIDEM [Concomitant]
     Indication: SEDATIVE THERAPY
     Dosage: 10 MG, DAILY (1/D)
     Dates: start: 20080101

REACTIONS (5)
  - BIPOLAR DISORDER [None]
  - DRUG INEFFECTIVE [None]
  - HUNGER [None]
  - LISTLESS [None]
  - WEIGHT INCREASED [None]
